FAERS Safety Report 13347430 (Version 4)
Quarter: 2017Q2

REPORT INFORMATION
  Report Type: Report from Study
  Country: CA (occurrence: CA)
  Receive Date: 20170317
  Receipt Date: 20170525
  Transmission Date: 20170830
  Serious: Yes (Hospitalization)
  Sender: FDA-Public Use
  Company Number: CA-HLSUS-2017-CA-000238

PATIENT
  Age: 29 Year
  Sex: Female
  Weight: 78.02 kg

DRUGS (10)
  1. METFORMIN [Concomitant]
     Active Substance: METFORMIN HYDROCHLORIDE
  2. NICOTINE GUM [Concomitant]
     Active Substance: NICOTINE
     Dosage: 1 DOSE IN FEB
     Dates: start: 201702
  3. LITHIUM. [Concomitant]
     Active Substance: LITHIUM
  4. CLOZARIL [Suspect]
     Active Substance: CLOZAPINE
     Indication: SCHIZOPHRENIA
     Dosage: 100MG DAILY MORNING AND 350MG DAILY BED TIME
     Route: 048
     Dates: start: 20161025, end: 20170316
  5. MILK OF MAGNESIA-CASCARA [Concomitant]
     Dosage: 3 DOSES IN MAR
     Dates: start: 201703
  6. PALIPERIDONE. [Concomitant]
     Active Substance: PALIPERIDONE
  7. LACTULOSE. [Concomitant]
     Active Substance: LACTULOSE
     Dosage: 1 DOSE IN MAR
     Dates: start: 201703
  8. HALDOL [Concomitant]
     Active Substance: HALOPERIDOL
     Indication: SCHIZOPHRENIA
     Dosage: 2MG BID
     Route: 048
     Dates: start: 20170123, end: 20170406
  9. FESOTERIDINE [Concomitant]
     Route: 048
     Dates: start: 20161221, end: 20170406
  10. QUETIAPINE. [Concomitant]
     Active Substance: QUETIAPINE
     Dosage: 100 MG, 1 DOSE IN FEB AND 2 DOSES IN MAR
     Dates: start: 201702

REACTIONS (1)
  - Hepatic enzyme increased [Recovering/Resolving]

NARRATIVE: CASE EVENT DATE: 20170202
